FAERS Safety Report 7385277-5 (Version None)
Quarter: 2011Q1

REPORT INFORMATION
  Report Type: 
  Country: None (occurrence: None)
  Receive Date: 20110330
  Receipt Date: 20100312
  Transmission Date: 20110831
  Serious: No
  Sender: FDA-Public Use
  Company Number: US-MYLANLABS-2010S1004345

PATIENT
  Age: 59 Year
  Sex: Female

DRUGS (5)
  1. LITHIUM [Concomitant]
  2. LEVOTHYROXINE SODIUM [Concomitant]
  3. EMSAM [Suspect]
     Indication: DEPRESSION
     Route: 062
     Dates: start: 20100201
  4. PRILOSEC [Concomitant]
  5. COGENTIN [Concomitant]

REACTIONS (1)
  - APPLICATION SITE IRRITATION [None]
